FAERS Safety Report 5097462-6 (Version None)
Quarter: 2006Q3

REPORT INFORMATION
  Report Type: 
  Country: None (occurrence: None)
  Receive Date: 20060901
  Receipt Date: 20060823
  Transmission Date: 20061208
  Serious: Yes (Other)
  Sender: FDA-Public Use
  Company Number: 2006103122

PATIENT
  Age: 81 Year
  Sex: Male
  Weight: 83.0083 kg

DRUGS (3)
  1. DILANTIN [Suspect]
     Indication: GRAND MAL CONVULSION
     Dosage: 400 MG (100 MG, 4 IN 1 D)
     Dates: start: 20040101
  2. PHENYTOIN [Suspect]
     Indication: GRAND MAL CONVULSION
     Dates: start: 20060101, end: 20060101
  3. XALATAN [Concomitant]

REACTIONS (7)
  - BALANCE DISORDER [None]
  - CATARACT [None]
  - CONVULSION [None]
  - DYSURIA [None]
  - PROSTATE EXAMINATION ABNORMAL [None]
  - THERAPEUTIC RESPONSE UNEXPECTED WITH DRUG SUBSTITUTION [None]
  - TREATMENT NONCOMPLIANCE [None]
